FAERS Safety Report 10677119 (Version 4)
Quarter: 2015Q3

REPORT INFORMATION
  Report Type: Report from Study
  Country: US (occurrence: US)
  Receive Date: 20141226
  Receipt Date: 20150714
  Transmission Date: 20151125
  Serious: Yes (Other)
  Sender: FDA-Public Use
  Company Number: US-SA-2014SA175501

PATIENT
  Age: 51 Year
  Sex: Female
  Weight: 190 kg

DRUGS (2)
  1. AUBAGIO [Suspect]
     Active Substance: TERIFLUNOMIDE
     Indication: MULTIPLE SCLEROSIS
     Route: 048
     Dates: start: 20130601
  2. AUBAGIO [Suspect]
     Active Substance: TERIFLUNOMIDE
     Indication: MULTIPLE SCLEROSIS
     Route: 065
     Dates: start: 201305

REACTIONS (3)
  - Ligament rupture [Unknown]
  - Blood glucose increased [Recovering/Resolving]
  - Arthritis [Unknown]
